FAERS Safety Report 11729126 (Version 1)
Quarter: 2015Q4

REPORT INFORMATION
  Report Type: Report from Study
  Country: US (occurrence: US)
  Receive Date: 20151112
  Receipt Date: 20151112
  Transmission Date: 20160304
  Serious: Yes (Other)
  Sender: FDA-Public Use
  Company Number: US-ABBVIE-15K-163-1496039-00

PATIENT
  Sex: Female

DRUGS (3)
  1. HUMIRA [Suspect]
     Active Substance: ADALIMUMAB
     Indication: RHEUMATOID ARTHRITIS
     Route: 058
  2. METHOTREXATE [Concomitant]
     Active Substance: METHOTREXATE
     Indication: PRODUCT USED FOR UNKNOWN INDICATION
  3. DUREZOL [Suspect]
     Active Substance: DIFLUPREDNATE
     Indication: PRODUCT USED FOR UNKNOWN INDICATION
     Route: 047

REACTIONS (6)
  - Eye swelling [Recovered/Resolved]
  - Corneal oedema [Recovered/Resolved]
  - Abnormal sensation in eye [Recovered/Resolved]
  - Corneal disorder [Recovered/Resolved]
  - Eye infection [Recovered/Resolved]
  - Superficial injury of eye [Recovered/Resolved]

NARRATIVE: CASE EVENT DATE: 2015
